FAERS Safety Report 18217336 (Version 1)
Quarter: 2020Q3

REPORT INFORMATION
  Report Type: Spontaneous
  Country: US (occurrence: US)
  Receive Date: 20200831
  Receipt Date: 20200831
  Transmission Date: 20201103
  Serious: Yes (Hospitalization)
  Sender: FDA-Public Use
  Company Number: None

PATIENT
  Age: 88 Year
  Sex: Male
  Weight: 104.33 kg

DRUGS (1)
  1. DOXYCYCLINE (DOXYCYCLINE HYCLATE 100MG TAB) [Suspect]
     Active Substance: DOXYCYCLINE HYCLATE
     Indication: CELLULITIS
     Route: 048
     Dates: start: 20200611, end: 20200618

REACTIONS (4)
  - Dry skin [None]
  - Peripheral swelling [None]
  - Swelling face [None]
  - Photosensitivity reaction [None]

NARRATIVE: CASE EVENT DATE: 20200618
